FAERS Safety Report 8935254 (Version 1)
Quarter: 2012Q4

REPORT INFORMATION
  Report Type: 
  Country: DE (occurrence: DE)
  Receive Date: 20121129
  Receipt Date: 20121129
  Transmission Date: 20130627
  Serious: Yes (Other)
  Sender: FDA-Public Use
  Company Number: DE-B.I. PHARMACEUTICALS,INC./RIDGEFIELD-2012-DE-02840DE

PATIENT
  Age: 74 Year
  Sex: Female
  Weight: 65 kg

DRUGS (4)
  1. PRADAXA [Suspect]
     Indication: ATRIAL FIBRILLATION
     Dosage: 220 mg
     Dates: start: 201108
  2. TORASEMID [Suspect]
  3. DIGITALIS [Concomitant]
  4. KEPPRA [Concomitant]

REACTIONS (2)
  - Creatinine renal clearance decreased [Not Recovered/Not Resolved]
  - Weight decreased [Not Recovered/Not Resolved]
